FAERS Safety Report 16567455 (Version 1)
Quarter: 2019Q3

REPORT INFORMATION
  Report Type: Spontaneous
  Country: JP (occurrence: JP)
  Receive Date: 20190712
  Receipt Date: 20190712
  Transmission Date: 20191004
  Serious: Yes (Other)
  Sender: FDA-Public Use
  Company Number: JP-MYLANLABS-2019M1064535

PATIENT
  Age: 77 Year
  Sex: Male

DRUGS (1)
  1. ZOVIRAX [Suspect]
     Active Substance: ACYCLOVIR
     Indication: PRODUCT USED FOR UNKNOWN INDICATION
     Dosage: UNK
     Route: 048

REACTIONS (4)
  - Renal impairment [Unknown]
  - Nephropathy [Unknown]
  - Toxic encephalopathy [Unknown]
  - Restlessness [Unknown]
